FAERS Safety Report 17794983 (Version 2)
Quarter: 2020Q2

REPORT INFORMATION
  Report Type: Spontaneous
  Country: US (occurrence: US)
  Receive Date: 20200515
  Receipt Date: 20200529
  Transmission Date: 20200714
  Serious: Yes (Hospitalization)
  Sender: FDA-Public Use
  Company Number: US-TEVA-2020-US-1234137

PATIENT
  Age: 86 Year
  Sex: Female

DRUGS (1)
  1. METHYLPREDNISOLONE ACETATE. [Suspect]
     Active Substance: METHYLPREDNISOLONE ACETATE
     Indication: MUSCULOSKELETAL PAIN
     Route: 014

REACTIONS (3)
  - Arthritis bacterial [Recovering/Resolving]
  - Osteomyelitis [Recovering/Resolving]
  - Clostridium bacteraemia [Recovering/Resolving]
